FAERS Safety Report 8918475 (Version 1)
Quarter: 2012Q4

REPORT INFORMATION
  Report Type: 
  Country: US (occurrence: US)
  Receive Date: 20121120
  Receipt Date: 20121120
  Transmission Date: 20130627
  Serious: No
  Sender: FDA-Public Use
  Company Number: US-ASTRAZENECA-2012SE18191

PATIENT
  Age: 75 Year
  Sex: Female

DRUGS (2)
  1. NEXIUM [Suspect]
     Dosage: ONCE IN THE DAY
     Route: 048
  2. NEXIUM [Suspect]
     Dosage: ONCE DURING THE DAY AND ONE AT NIGHT
     Route: 048

REACTIONS (3)
  - Vomiting [Unknown]
  - Drug ineffective [Unknown]
  - Inappropriate schedule of drug administration [Unknown]
